FAERS Safety Report 5471404-3 (Version None)
Quarter: 2007Q3

REPORT INFORMATION
  Report Type: 
  Country: None (occurrence: None)
  Receive Date: 20070928
  Receipt Date: 20061003
  Transmission Date: 20080115
  Serious: No
  Sender: FDA-Public Use
  Company Number: US-BRISTOL-MYERS SQUIBB COMPANY-13528880

PATIENT
  Age: 71 Year
  Sex: Male
  Weight: 147 kg

DRUGS (7)
  1. DEFINITY [Suspect]
     Indication: ECHOCARDIOGRAM
     Dosage: 1 DOSAGE FORM = 6-7 CC OF 9CC OF PERFLUTREN
  2. DICLOFENAC SODIUM [Concomitant]
  3. LIPITOR [Concomitant]
  4. LASIX [Concomitant]
  5. ATENOLOL [Concomitant]
  6. PROSCAR [Concomitant]
  7. COUMADIN [Concomitant]

REACTIONS (4)
  - FLANK PAIN [None]
  - GROIN PAIN [None]
  - NECK PAIN [None]
  - PAIN IN EXTREMITY [None]
